FAERS Safety Report 14945976 (Version 1)
Quarter: 2018Q2

REPORT INFORMATION
  Report Type: Report from Study
  Country: NL (occurrence: NL)
  Receive Date: 20180529
  Receipt Date: 20180529
  Transmission Date: 20180711
  Serious: Yes (Other)
  Sender: FDA-Public Use
  Company Number: NL-ROCHE-2126507

PATIENT

DRUGS (6)
  1. OXALIPLATIN. [Suspect]
     Active Substance: OXALIPLATIN
     Indication: NEOPLASM MALIGNANT
     Route: 065
  2. CAPECITABINE. [Suspect]
     Active Substance: CAPECITABINE
     Indication: NEOPLASM MALIGNANT
     Route: 065
  3. GEMCITABINE [Suspect]
     Active Substance: GEMCITABINE\GEMCITABINE HYDROCHLORIDE
     Indication: NEOPLASM MALIGNANT
     Route: 065
  4. INDOMETHACIN. [Suspect]
     Active Substance: INDOMETHACIN
     Indication: NEOPLASM MALIGNANT
     Route: 048
  5. FLUOROURACIL. [Suspect]
     Active Substance: FLUOROURACIL
     Indication: NEOPLASM MALIGNANT
     Route: 062
  6. CISPLATIN. [Suspect]
     Active Substance: CISPLATIN
     Indication: NEOPLASM MALIGNANT
     Route: 065

REACTIONS (4)
  - Cardiotoxicity [Unknown]
  - Acute kidney injury [Recovered/Resolved]
  - Neutropenia [Unknown]
  - Bone marrow toxicity [Unknown]
